FAERS Safety Report 15455390 (Version 1)
Quarter: 2018Q4

REPORT INFORMATION
  Report Type: Report from Study
  Country: EG (occurrence: EG)
  Receive Date: 20181002
  Receipt Date: 20181002
  Transmission Date: 20190204
  Serious: Yes (Other)
  Sender: FDA-Public Use
  Company Number: EG-SA-2018SA265662

PATIENT
  Age: 61 Year
  Sex: Female

DRUGS (5)
  1. MILGA [Concomitant]
     Dosage: UNK UNK, UNK
     Route: 065
  2. EZAPRIL-CO [Concomitant]
     Dosage: UNK UNK, UNK
     Route: 065
  3. DEPOVIT [Concomitant]
     Dosage: UNK UNK, UNK
     Route: 065
  4. INSULIN GLARGINE [Suspect]
     Active Substance: INSULIN GLARGINE
     Indication: TYPE 2 DIABETES MELLITUS
     Dosage: 40 IU, QD
     Route: 058
     Dates: start: 201706
  5. VILDAGLUSE PLUS [Concomitant]
     Dosage: UNK UNK, UNK
     Route: 065

REACTIONS (4)
  - Blood glucose fluctuation [Not Recovered/Not Resolved]
  - Device issue [Unknown]
  - Paraesthesia [Recovering/Resolving]
  - Neuropathy peripheral [Recovering/Resolving]

NARRATIVE: CASE EVENT DATE: 201709
